FAERS Safety Report 14583039 (Version 3)
Quarter: 2022Q1

REPORT INFORMATION
  Report Type: Report from Study
  Country: JP (occurrence: JP)
  Receive Date: 20180228
  Receipt Date: 20220124
  Transmission Date: 20220423
  Serious: Yes (Other)
  Sender: FDA-Public Use
  Company Number: JP-CELGENE-JPN-20171204301

PATIENT
  Age: 66 Year
  Sex: Female

DRUGS (37)
  1. REVLIMID [Suspect]
     Active Substance: LENALIDOMIDE
     Indication: Adult T-cell lymphoma/leukaemia
     Dosage: 20 MILLIGRAM
     Route: 048
     Dates: start: 20171128, end: 20171214
  2. GEMCITABINE [Suspect]
     Active Substance: GEMCITABINE
     Indication: Adult T-cell lymphoma/leukaemia
     Dosage: 1250 MILLIGRAM
     Route: 041
     Dates: start: 20171215, end: 20171215
  3. GEMCITABINE [Suspect]
     Active Substance: GEMCITABINE
     Dosage: 600 MILLIGRAM
     Route: 041
     Dates: start: 20171222, end: 20171222
  4. GEMCITABINE [Suspect]
     Active Substance: GEMCITABINE
     Dosage: 1200 MILLIGRAM
     Route: 041
     Dates: start: 20180110, end: 20180110
  5. GEMCITABINE [Suspect]
     Active Substance: GEMCITABINE
     Dosage: 1200 MILLIGRAM
     Route: 041
     Dates: start: 20180117, end: 20180117
  6. GEMCITABINE [Suspect]
     Active Substance: GEMCITABINE
     Dosage: 1200 MILLIGRAM
     Route: 041
     Dates: start: 20180207, end: 20180207
  7. GEMCITABINE [Suspect]
     Active Substance: GEMCITABINE
     Dosage: 1200 MILLIGRAM
     Route: 041
     Dates: start: 20180214, end: 20180214
  8. GEMCITABINE [Suspect]
     Active Substance: GEMCITABINE
     Dosage: 1200 MILLIGRAM
     Route: 041
     Dates: start: 20180307, end: 20180307
  9. GEMCITABINE [Suspect]
     Active Substance: GEMCITABINE
     Dosage: 1200 MILLIGRAM
     Route: 041
     Dates: start: 20180314, end: 20180314
  10. GEMCITABINE [Suspect]
     Active Substance: GEMCITABINE
     Dosage: 1200 MILLIGRAM
     Route: 041
     Dates: start: 20180418, end: 20180418
  11. GEMCITABINE [Suspect]
     Active Substance: GEMCITABINE
     Dosage: 1200 MILLIGRAM
     Route: 041
     Dates: start: 20180425, end: 20180425
  12. GEMCITABINE [Suspect]
     Active Substance: GEMCITABINE
     Dosage: 1200 MILLIGRAM
     Route: 041
     Dates: start: 20180516, end: 20180516
  13. GEMCITABINE [Suspect]
     Active Substance: GEMCITABINE
     Dosage: 1200 MILLIGRAM
     Route: 041
     Dates: start: 20180523, end: 20180523
  14. CISPLATIN [Suspect]
     Active Substance: CISPLATIN
     Indication: Adult T-cell lymphoma/leukaemia
     Dosage: 100 MILLIGRAM
     Route: 041
     Dates: start: 20171215, end: 20171215
  15. CISPLATIN [Suspect]
     Active Substance: CISPLATIN
     Dosage: 100 MILLIGRAM
     Route: 041
     Dates: start: 20180110, end: 20180110
  16. CISPLATIN [Suspect]
     Active Substance: CISPLATIN
     Dosage: 100 MILLIGRAM
     Route: 041
     Dates: start: 20180207, end: 20180207
  17. CISPLATIN [Suspect]
     Active Substance: CISPLATIN
     Dosage: 100 MILLIGRAM
     Route: 041
     Dates: start: 20180307, end: 20180307
  18. CISPLATIN [Suspect]
     Active Substance: CISPLATIN
     Dosage: 100 MILLIGRAM
     Route: 041
     Dates: start: 20180418, end: 20180418
  19. CISPLATIN [Suspect]
     Active Substance: CISPLATIN
     Dosage: 100 MILLIGRAM
     Route: 041
     Dates: start: 20180516, end: 20180516
  20. DEXAMETHASONE SODIUM PHOSPHATE [Suspect]
     Active Substance: DEXAMETHASONE SODIUM PHOSPHATE
     Indication: Adult T-cell lymphoma/leukaemia
     Dosage: 39.6 MILLIGRAM
     Route: 041
     Dates: start: 20171215, end: 20171215
  21. DEXAMETHASONE SODIUM PHOSPHATE [Suspect]
     Active Substance: DEXAMETHASONE SODIUM PHOSPHATE
     Dosage: 39.6 MILLIGRAM
     Route: 041
     Dates: start: 20180110, end: 20180110
  22. DEXAMETHASONE SODIUM PHOSPHATE [Suspect]
     Active Substance: DEXAMETHASONE SODIUM PHOSPHATE
     Dosage: 39.6 MILLIGRAM
     Route: 041
     Dates: start: 20180207, end: 20180207
  23. DEXAMETHASONE SODIUM PHOSPHATE [Suspect]
     Active Substance: DEXAMETHASONE SODIUM PHOSPHATE
     Dosage: 39.6 MILLIGRAM
     Route: 041
     Dates: start: 20180307, end: 20180307
  24. DEXAMETHASONE SODIUM PHOSPHATE [Suspect]
     Active Substance: DEXAMETHASONE SODIUM PHOSPHATE
     Dosage: 39.6 MILLIGRAM
     Route: 041
     Dates: start: 20180418, end: 20180418
  25. DEXAMETHASONE SODIUM PHOSPHATE [Suspect]
     Active Substance: DEXAMETHASONE SODIUM PHOSPHATE
     Dosage: 39.6 MILLIGRAM
     Route: 041
     Dates: start: 20180516, end: 20180516
  26. DECADRON [Suspect]
     Active Substance: DEXAMETHASONE
     Indication: Adult T-cell lymphoma/leukaemia
     Dosage: 40 MILLIGRAM
     Route: 048
     Dates: start: 20171216, end: 20171218
  27. DECADRON [Suspect]
     Active Substance: DEXAMETHASONE
     Dosage: 40 MILLIGRAM
     Route: 048
     Dates: start: 20180111, end: 20180113
  28. DECADRON [Suspect]
     Active Substance: DEXAMETHASONE
     Dosage: 40 MILLIGRAM
     Route: 048
     Dates: start: 20180208, end: 20180210
  29. DECADRON [Suspect]
     Active Substance: DEXAMETHASONE
     Dosage: 40 MILLIGRAM
     Route: 048
     Dates: start: 20180308, end: 20180310
  30. DECADRON [Suspect]
     Active Substance: DEXAMETHASONE
     Dosage: 40 MILLIGRAM
     Route: 048
     Dates: start: 20180419, end: 20180421
  31. DECADRON [Suspect]
     Active Substance: DEXAMETHASONE
     Dosage: 40 MILLIGRAM
     Route: 048
     Dates: start: 20180517, end: 20180519
  32. PREDNISOLONE [Concomitant]
     Active Substance: PREDNISOLONE
     Indication: Skin lesion
     Dosage: 10 MILLIGRAM
     Route: 065
  33. PREDNISOLONE [Concomitant]
     Active Substance: PREDNISOLONE
     Indication: Adverse event
     Dosage: 5 MILLIGRAM
     Route: 048
     Dates: start: 20171128, end: 2017
  34. PREDNISOLONE [Concomitant]
     Active Substance: PREDNISOLONE
     Indication: Prophylaxis
     Dosage: 10 MILLIGRAM
     Route: 048
     Dates: start: 20171213
  35. CILOSTAZOL [Concomitant]
     Active Substance: CILOSTAZOL
     Indication: Thrombosis prophylaxis
     Dosage: UNKNOWN
     Route: 065
     Dates: start: 20171128
  36. POTASSIUM CHLORIDE [Concomitant]
     Active Substance: POTASSIUM CHLORIDE
     Indication: Adverse event
     Dosage: UNKNOWN
     Route: 048
  37. FILGRASTIM [Concomitant]
     Active Substance: FILGRASTIM
     Indication: Adverse event
     Dosage: UNKNOWN
     Route: 058

REACTIONS (8)
  - Dermatitis exfoliative generalised [Recovered/Resolved]
  - Myelosuppression [Recovered/Resolved]
  - Myelosuppression [Recovered/Resolved]
  - Anaemia [Recovered/Resolved]
  - Tachycardia [Not Recovered/Not Resolved]
  - Adult T-cell lymphoma/leukaemia [Unknown]
  - Hypokalaemia [Recovered/Resolved]
  - Hypokalaemia [Recovered/Resolved]

NARRATIVE: CASE EVENT DATE: 20171128
